FAERS Safety Report 17041244 (Version 1)
Quarter: 2019Q4

REPORT INFORMATION
  Report Type: Spontaneous
  Country: US (occurrence: US)
  Receive Date: 20191118
  Receipt Date: 20191118
  Transmission Date: 20200122
  Serious: Yes (Life-Threatening, Other)
  Sender: FDA-Public Use
  Company Number: US-JNJFOC-20191104155

PATIENT

DRUGS (49)
  1. AXOTAL                             /00727001/ [Concomitant]
     Indication: PAIN
     Route: 048
  2. MEPERIDINE/PROMETHAZINE [Concomitant]
     Indication: PAIN
     Route: 042
  3. MORPHINE [Concomitant]
     Active Substance: MORPHINE
     Indication: PAIN
     Route: 048
  4. TAPENTADOL HYDROCHLORIDE [Concomitant]
     Active Substance: TAPENTADOL HYDROCHLORIDE
     Indication: PAIN
     Route: 048
  5. ACETYLSALICYLIC ACID W/CAFFEINE/PARACETAMOL [Concomitant]
     Active Substance: ACETAMINOPHEN\ASPIRIN\CAFFEINE\CODEINE PHOSPHATE
     Indication: PAIN
     Route: 048
  6. OXYMORPHONE [Concomitant]
     Active Substance: OXYMORPHONE
     Indication: PAIN
     Route: 048
  7. HYDROMORPHONE [Concomitant]
     Active Substance: HYDROMORPHONE
     Indication: PAIN
     Route: 048
  8. HYDROMORPHONE [Concomitant]
     Active Substance: HYDROMORPHONE
     Route: 042
  9. BUPRENORPHINE. [Concomitant]
     Active Substance: BUPRENORPHINE
     Indication: PAIN
     Route: 042
  10. DROPERIDOL W/FENTANYL [Concomitant]
     Active Substance: DROPERIDOL\FENTANYL
     Indication: PAIN
     Route: 042
  11. PENTAZOCINE [Concomitant]
     Active Substance: PENTAZOCINE
     Indication: PAIN
     Route: 042
  12. PARACETAMOL W/PHENYLTOLOXAMINE [Concomitant]
     Indication: PAIN
     Route: 048
  13. MEPERIDINE                         /00016301/ [Concomitant]
     Active Substance: MEPERIDINE
     Indication: PAIN
     Route: 048
  14. MEPERIDINE                         /00016301/ [Concomitant]
     Active Substance: MEPERIDINE
     Route: 042
  15. ACETAMINOPHEN W/PROPOXYPHENE [Concomitant]
     Active Substance: ACETAMINOPHEN\PROPOXYPHENE
     Indication: PAIN
     Route: 048
  16. IBUPROFEN. [Concomitant]
     Active Substance: IBUPROFEN
     Indication: PAIN
     Route: 048
  17. SALSALATE. [Concomitant]
     Active Substance: SALSALATE
     Indication: PAIN
     Route: 048
  18. PENTAZOCINE/NALOXONE [Concomitant]
     Active Substance: NALOXONE\PENTAZOCINE
     Indication: PAIN
     Route: 048
  19. ASPRIN [Concomitant]
     Active Substance: ASPIRIN
     Indication: PAIN
     Route: 048
  20. DIHYDROERGOTAMINE [Concomitant]
     Active Substance: DIHYDROERGOTAMINE
     Indication: PAIN
     Route: 042
  21. OXYMORPHONE [Concomitant]
     Active Substance: OXYMORPHONE
     Route: 042
  22. MORPHINE [Concomitant]
     Active Substance: MORPHINE
     Route: 042
  23. TRAMADOL/PARACETAMOL [Concomitant]
     Active Substance: ACETAMINOPHEN\TRAMADOL
     Indication: PAIN
     Route: 048
  24. HYDROCODONE/ACETAMINOPHEN [Concomitant]
     Active Substance: ACETAMINOPHEN\HYDROCODONE
     Indication: PAIN
     Route: 048
  25. PARACETAMOL [Suspect]
     Active Substance: ACETAMINOPHEN
     Indication: PAIN
     Route: 042
  26. METHADONE [Concomitant]
     Active Substance: METHADONE HYDROCHLORIDE
     Indication: PAIN
     Route: 048
  27. HYDROCODONE W/IBUPROFEN [Concomitant]
     Active Substance: HYDROCODONE\IBUPROFEN
     Indication: PAIN
     Route: 048
  28. CODEINE [Concomitant]
     Active Substance: CODEINE
     Indication: PAIN
     Route: 048
  29. BUPRENORPHINE. [Concomitant]
     Active Substance: BUPRENORPHINE
     Indication: PAIN
     Route: 048
  30. PARACETAMOL W/PENTAZOCINE          /00642701/ [Concomitant]
     Active Substance: ACETAMINOPHEN\PENTAZOCINE HYDROCHLORIDE
     Indication: PAIN
     Route: 048
  31. OXYCODONE AND ASPIRIN              /00554201/ [Concomitant]
     Indication: PAIN
     Route: 048
  32. OXYCODONE [Concomitant]
     Active Substance: OXYCODONE
     Indication: PAIN
     Route: 048
  33. FENTANYL. [Concomitant]
     Active Substance: FENTANYL
     Indication: PAIN
     Route: 048
  34. IBUPROFEN. [Concomitant]
     Active Substance: IBUPROFEN
     Indication: PAIN
     Route: 042
  35. METHADONE [Concomitant]
     Active Substance: METHADONE HYDROCHLORIDE
     Route: 042
  36. ASPIRIN W/BUTALBITAL/CAFFEINE [Concomitant]
     Indication: PAIN
     Route: 048
  37. DIFLUNISAL. [Concomitant]
     Active Substance: DIFLUNISAL
     Indication: PAIN
     Route: 048
  38. LEVORPHANOL [Concomitant]
     Active Substance: LEVORPHANOL
     Indication: PAIN
     Route: 048
  39. TRAMADOL HYDROCHLORIDE. [Concomitant]
     Active Substance: TRAMADOL HYDROCHLORIDE
     Indication: PAIN
     Route: 048
  40. BUTORPHANOL [Concomitant]
     Active Substance: BUTORPHANOL
     Indication: PAIN
     Route: 042
  41. OXYMORPHONE [Concomitant]
     Active Substance: OXYMORPHONE
     Indication: PAIN
     Route: 042
  42. KETOROLAC [Concomitant]
     Active Substance: KETOROLAC TROMETHAMINE
     Indication: PAIN
     Route: 048
  43. KETOROLAC [Concomitant]
     Active Substance: KETOROLAC TROMETHAMINE
     Route: 042
  44. PARACETAMOL/DIPHENHYDRAMINE HCL [Concomitant]
     Active Substance: ACETAMINOPHEN\DIPHENHYDRAMINE HYDROCHLORIDE
     Indication: PAIN
     Route: 048
  45. ACETAMINOPHEN W/BUTALBITAL/CAFFEINE/CODEINE P [Concomitant]
     Active Substance: ACETAMINOPHEN\BUTALBITAL\CAFFEINE\CODEINE PHOSPHATE
     Indication: PAIN
     Route: 048
  46. OXYCODONE W/PARACETAMOL [Concomitant]
     Active Substance: ACETAMINOPHEN\OXYCODONE HYDROCHLORIDE
     Indication: PAIN
     Route: 048
  47. PARACETAMOL [Suspect]
     Active Substance: ACETAMINOPHEN
     Indication: PAIN
     Route: 048
  48. PARACETAMOL/CODEINE [Concomitant]
     Active Substance: ACETAMINOPHEN\CODEINE PHOSPHATE
     Indication: PAIN
     Route: 048
  49. NALBUPHINE [Concomitant]
     Active Substance: NALBUPHINE
     Indication: PAIN
     Route: 042

REACTIONS (3)
  - Vomiting [Unknown]
  - Nausea [Unknown]
  - Respiratory depression [Unknown]
